FAERS Safety Report 6522946-0 (Version None)
Quarter: 2009Q4

REPORT INFORMATION
  Report Type: 
  Country: None (occurrence: None)
  Receive Date: 20091230
  Receipt Date: 20091216
  Transmission Date: 20100525
  Serious: Yes (Hospitalization)
  Sender: FDA-Public Use
  Company Number: FI-PFIZER INC-2009302986

PATIENT
  Sex: Female

DRUGS (4)
  1. LYRICA [Suspect]
     Indication: NEURALGIA
     Dosage: 75MG+75MG+25MG/DAILY
     Route: 048
     Dates: start: 20090601, end: 20091113
  2. LYRICA [Interacting]
     Indication: COMPLEX REGIONAL PAIN SYNDROME
     Dosage: 150MG DAILY
     Route: 048
     Dates: start: 20090601, end: 20090101
  3. MIACALCIN [Interacting]
     Dosage: ONCE DAILY
  4. PARACETAMOL [Concomitant]
     Indication: PAIN

REACTIONS (4)
  - DRUG INTERACTION [None]
  - DYSPHAGIA [None]
  - DYSPNOEA [None]
  - VOCAL CORD DISORDER [None]
